FAERS Safety Report 19248509 (Version 1)
Quarter: 2021Q2

REPORT INFORMATION
  Report Type: Report from Study
  Country: US (occurrence: US)
  Receive Date: 20210512
  Receipt Date: 20210512
  Transmission Date: 20210717
  Serious: Yes (Death, Other)
  Sender: FDA-Public Use
  Company Number: NVSC2021US105917

PATIENT
  Age: 85 Year
  Sex: Female
  Weight: 125 kg

DRUGS (1)
  1. TREPROSTINIL. [Suspect]
     Active Substance: TREPROSTINIL
     Indication: PULMONARY ARTERIAL HYPERTENSION
     Dosage: 78 NANOGRAM PER KILOGRAM (NG/KG/MIN) CONTINUOUS
     Route: 042

REACTIONS (2)
  - Pulmonary hypertension [Fatal]
  - Respiratory failure [Fatal]

NARRATIVE: CASE EVENT DATE: 20210410
